FAERS Safety Report 7909133-6 (Version None)
Quarter: 2011Q4

REPORT INFORMATION
  Report Type: 
  Country: None (occurrence: None)
  Receive Date: 20111111
  Receipt Date: 20101027
  Transmission Date: 20120403
  Serious: No
  Sender: FDA-Public Use
  Company Number: US-GLAXOSMITHKLINE-A0889133A

PATIENT
  Age: 46 Year
  Sex: Male

DRUGS (5)
  1. COREG [Suspect]
     Indication: RIGHT VENTRICULAR FAILURE
     Dosage: 12.5MG TWICE PER DAY
     Route: 048
  2. LANOXIN [Concomitant]
  3. WARFARIN SODIUM [Concomitant]
  4. VASOTEC [Concomitant]
  5. LASIX [Concomitant]

REACTIONS (2)
  - JOINT CREPITATION [None]
  - ARTHRALGIA [None]
